FAERS Safety Report 21517705 (Version 1)
Quarter: 2022Q4

REPORT INFORMATION
  Report Type: Other
  Country: RU (occurrence: None)
  Receive Date: 20221028
  Receipt Date: 20221028
  Transmission Date: 20230113
  Serious: Yes (Other)
  Sender: FDA-Public Use
  Company Number: RU-ROCHE-2852500

PATIENT

DRUGS (1)
  1. SATRALIZUMAB [Suspect]
     Active Substance: SATRALIZUMAB
     Indication: Product used for unknown indication
     Dosage: MAINTENANCE DOSE (MAINTENANCE DOSE 120 MG SC INJECTION EVERY 4 WEEKS).
     Route: 058

REACTIONS (2)
  - Neutropenia [Not Recovered/Not Resolved]
  - Thrombocytopenia [Unknown]

NARRATIVE: CASE EVENT DATE: 20210519
